FAERS Safety Report 5026645-6 (Version None)
Quarter: 2006Q2

REPORT INFORMATION
  Report Type: 
  Country: None (occurrence: None)
  Receive Date: 20060615
  Receipt Date: 20060613
  Transmission Date: 20061013
  Serious: Yes (Hospitalization)
  Sender: FDA-Public Use
  Company Number: US-GLAXOSMITHKLINE-A0608846A

PATIENT
  Age: 82 Year
  Sex: Female

DRUGS (4)
  1. AVANDIA [Suspect]
     Route: 048
  2. LOTREL [Concomitant]
  3. GLIPIZIDE [Concomitant]
  4. ASPIRIN [Concomitant]

REACTIONS (2)
  - BLOOD GLUCOSE ABNORMAL [None]
  - PAIN IN EXTREMITY [None]
